FAERS Safety Report 10070110 (Version 3)
Quarter: 2014Q2

REPORT INFORMATION
  Report Type: Report from Study
  Country: BR (occurrence: BR)
  Receive Date: 20140410
  Receipt Date: 20140505
  Transmission Date: 20141212
  Serious: Yes (Hospitalization, Other)
  Sender: FDA-Public Use
  Company Number: PHHY2014BR021610

PATIENT
  Age: 47 Year
  Sex: Female
  Weight: 85.9 kg

DRUGS (15)
  1. SANDOSTATIN LAR [Suspect]
     Indication: ACROMEGALY
     Dosage: 30 MG, EACH 21 DAYS
     Route: 030
  2. SANDOSTATIN LAR [Suspect]
     Dosage: 20 MG, EVERY 28 DAYS
     Dates: start: 201205
  3. SANDOSTATIN LAR [Suspect]
     Dosage: 30 MG, EVERY 28 DAYS
  4. SANDOSTATIN LAR [Suspect]
     Dosage: 30 MG, EVERY 21 DAYS
     Dates: end: 20140311
  5. IMIPRAMINE [Suspect]
     Indication: DEPRESSION
     Dosage: 3 DF, AT NIGHT
  6. CARVEDILOL [Suspect]
     Indication: CARDIAC FAILURE
     Dosage: 1 DF, EVERY 12 HOURS
     Dates: start: 2012
  7. RISPERIDONE [Suspect]
     Indication: DEPRESSION
     Dosage: 1 DF, IN THE MORNING
     Dates: start: 2008
  8. FERROUS SULFATE [Suspect]
     Indication: ANAEMIA
     Dosage: 3 DF, A DAY
     Dates: start: 2012
  9. FLUOXETINE [Suspect]
     Indication: DEPRESSION
     Dosage: 1 DF, DAILY
     Dates: start: 200712, end: 200801
  10. FLUOXETINE [Suspect]
     Dosage: 2 DF, DAILY
     Dates: start: 200801
  11. PREDNISONE [Suspect]
     Indication: PAIN
     Dosage: 1 DF, A DAY
     Dates: start: 2012
  12. FOLIC ACID [Suspect]
     Indication: BLOOD DISORDER
     Dosage: 1 DF, A DAY
     Dates: start: 2012
  13. FOLIC ACID [Suspect]
     Indication: ANAEMIA
  14. PACO [Concomitant]
     Indication: PAIN
     Dosage: UNK UKN, 8 TO 8 HOURS
  15. ENALAPRIL [Concomitant]
     Indication: HYPERTENSION
     Dosage: UNK UKN, 12 TO 12 HOURS
     Dates: start: 2012

REACTIONS (10)
  - Haemorrhage [Recovering/Resolving]
  - Diabetes mellitus [Recovering/Resolving]
  - Polycystic ovaries [Unknown]
  - Gait disturbance [Recovering/Resolving]
  - Hypertension [Recovered/Resolved]
  - Anaemia [Recovered/Resolved]
  - Weight decreased [Recovering/Resolving]
  - Pain [Recovering/Resolving]
  - Depression [Recovering/Resolving]
  - Blood test abnormal [Recovering/Resolving]
